FAERS Safety Report 7640340-6 (Version None)
Quarter: 2011Q3

REPORT INFORMATION
  Report Type: 
  Country: None (occurrence: None)
  Receive Date: 20110728
  Receipt Date: 20110718
  Transmission Date: 20111222
  Serious: Yes (Life-Threatening, Hospitalization)
  Sender: FDA-Public Use
  Company Number: US-BAYER-201041664NA

PATIENT
  Age: 44 Year
  Sex: Female
  Weight: 83 kg

DRUGS (8)
  1. YASMIN [Suspect]
     Indication: PRODUCT USED FOR UNKNOWN INDICATION
     Dosage: UNK
     Route: 048
     Dates: start: 20051001, end: 20100501
  2. DROSPIRENONE AND ETHINYL ESTRADIOL [Suspect]
     Indication: PRODUCT USED FOR UNKNOWN INDICATION
     Dosage: UNK
     Route: 048
     Dates: start: 20051001, end: 20100501
  3. WELLBUTRIN [Concomitant]
     Dosage: 150 MG, UNK
     Dates: start: 20070101, end: 20100101
  4. YASMIN [Suspect]
     Indication: PREMENSTRUAL SYNDROME
  5. BENICAR [Concomitant]
  6. HUMALOG [Concomitant]
     Dosage: 75 +#8211; 25 VIAL
     Dates: start: 20000101
  7. DROSPIRENONE AND ETHINYL ESTRADIOL [Suspect]
     Indication: PREMENSTRUAL SYNDROME
  8. NSAID'S [Concomitant]
     Dosage: UNK
     Dates: end: 20100510

REACTIONS (1)
  - CEREBROVASCULAR ACCIDENT [None]
